FAERS Safety Report 24278975 (Version 1)
Quarter: 2024Q3

REPORT INFORMATION
  Report Type: Spontaneous
  Country: US (occurrence: US)
  Receive Date: 20240903
  Receipt Date: 20240903
  Transmission Date: 20241016
  Serious: No
  Sender: MYLAN
  Company Number: US-MYLANLABS-2024M1077325

PATIENT
  Sex: Female
  Weight: 91.17 kg

DRUGS (1)
  1. ZOLOFT [Suspect]
     Active Substance: SERTRALINE HYDROCHLORIDE
     Indication: Anxiety
     Dosage: 50 MILLIGRAM, QD (50 MG 1 TABLET EVERY NIGHT AT 10 PM)
     Route: 065

REACTIONS (3)
  - Heavy menstrual bleeding [Unknown]
  - Menstruation irregular [Unknown]
  - Dysmenorrhoea [Recovered/Resolved]
